FAERS Safety Report 9392339 (Version 1)
Quarter: 2013Q3

REPORT INFORMATION
  Report Type: Spontaneous
  Country: US (occurrence: None)
  Receive Date: 20130708
  Receipt Date: 20130708
  Transmission Date: 20140515
  Serious: Yes (Hospitalization)
  Sender: FDA-Public Use
  Company Number: None

PATIENT
  Age: 67 Year
  Sex: Male
  Weight: 71.8 kg

DRUGS (2)
  1. WARFARIN [Suspect]
     Dosage: MG EVERY DAY PO
     Route: 048
     Dates: start: 20130321, end: 20130701
  2. ACETAMINOPHEN [Suspect]
     Indication: PAIN
     Route: 048
     Dates: start: 20130625, end: 20130701

REACTIONS (5)
  - Abdominal wall haematoma [None]
  - Groin pain [None]
  - Contusion [None]
  - Extravasation [None]
  - International normalised ratio increased [None]
